FAERS Safety Report 13445931 (Version 1)
Quarter: 2017Q2

REPORT INFORMATION
  Report Type: Spontaneous
  Country: US (occurrence: US)
  Receive Date: 20170417
  Receipt Date: 20170417
  Transmission Date: 20170830
  Serious: No
  Sender: FDA-Public Use
  Company Number: US-BION-005955

PATIENT
  Age: 91 Year
  Sex: Male
  Weight: 78 kg

DRUGS (5)
  1. TEMAZEPAM. [Concomitant]
     Active Substance: TEMAZEPAM
  2. KIRKLANDS MATURE MULTIVITAMINS [Concomitant]
  3. ENALAPRIL [Concomitant]
     Active Substance: ENALAPRIL
  4. ALEVE [Suspect]
     Active Substance: NAPROXEN SODIUM
     Indication: BURNING SENSATION
     Route: 048
     Dates: start: 20170125, end: 20170127
  5. ASPIRIN EQUATE [Concomitant]
     Dosage: 1/2 ONCE DAILY, STRENGTH: 325 MG

REACTIONS (2)
  - Expired product administered [Not Recovered/Not Resolved]
  - Off label use [Unknown]

NARRATIVE: CASE EVENT DATE: 20170125
